FAERS Safety Report 9197004 (Version 1)
Quarter: 2013Q1

REPORT INFORMATION
  Report Type: Spontaneous
  Country: US (occurrence: None)
  Receive Date: 20120709
  Receipt Date: 20120709
  Transmission Date: 20140127
  Serious: No
  Sender: FDA-Public Use
  Company Number: 2012HGS-003614

PATIENT
  Age: 33 Year
  Sex: Female
  Weight: 196 kg

DRUGS (3)
  1. BENLYSTA [Suspect]
     Dosage: 1 IN 28 D, INTRAVENOUS DRIP
     Dates: start: 20120405
  2. HYDROCHLOROQUINE (HYDROCHLORQUINE SULFATE) (HYDROCHLORQUINE SULFATE) [Concomitant]
  3. PREDNISONE (PREDNISONE ACETATE) (PREDNISONE ACETATE) [Concomitant]

REACTIONS (1)
  - Sweat discolouration [None]
